FAERS Safety Report 4402307-0 (Version None)
Quarter: 2004Q3

REPORT INFORMATION
  Report Type: 
  Country: None (occurrence: None)
  Receive Date: 20040720
  Receipt Date: 20040707
  Transmission Date: 20050211
  Serious: Yes (Death)
  Sender: FDA-Public Use
  Company Number: HCM-033

PATIENT
  Age: 59 Year
  Sex: Male

DRUGS (6)
  1. HYCAMTIN [Suspect]
     Dosage: 1.8MG PER DAY
     Route: 042
     Dates: start: 20031215, end: 20031219
  2. FUROSEMIDE [Concomitant]
     Indication: PROPHYLAXIS
     Dosage: 10MG PER DAY
     Route: 042
     Dates: start: 20031216
  3. RAMOSETRON HYDROCHLORIDE [Concomitant]
     Indication: PROPHYLAXIS
     Dosage: .3MG PER DAY
     Route: 042
     Dates: start: 20031215, end: 20031217
  4. LENOGRASTIM [Concomitant]
     Dosage: 100UG PER DAY
     Route: 042
     Dates: start: 20031223, end: 20031231
  5. BETAMETHASONE [Concomitant]
     Dosage: 4MG PER DAY
     Route: 048
     Dates: start: 20031210, end: 20040110
  6. PANIPENEM BETAMIPRON [Concomitant]
     Indication: SYSTEMIC ANTIBACTERIAL THERAPY
     Dosage: 1G PER DAY
     Route: 042
     Dates: start: 20031226, end: 20031231

REACTIONS (7)
  - ANAEMIA [None]
  - BLOOD ELECTROLYTES ABNORMAL [None]
  - CARCINOMA [None]
  - HYPOPROTEINAEMIA [None]
  - PLATELET COUNT DECREASED [None]
  - RESPIRATORY FAILURE [None]
  - WHITE BLOOD CELL COUNT ABNORMAL [None]
